FAERS Safety Report 4528148-1 (Version None)
Quarter: 2004Q4

REPORT INFORMATION
  Report Type: 
  Country: None (occurrence: None)
  Receive Date: 20041130
  Receipt Date: 20040927
  Transmission Date: 20050328
  Serious: No
  Sender: FDA-Public Use
  Company Number: 702311

PATIENT
  Age: 24 Year
  Sex: Male
  Weight: 68.0396 kg

DRUGS (1)
  1. AMEVIVE [Suspect]
     Indication: PSORIASIS
     Dosage: 15 MG QW IM
     Route: 030
     Dates: start: 20040730

REACTIONS (4)
  - CD4 LYMPHOCYTES DECREASED [None]
  - CHEST DISCOMFORT [None]
  - DYSPNOEA [None]
  - T-LYMPHOCYTE COUNT DECREASED [None]
